FAERS Safety Report 16274225 (Version 3)
Quarter: 2020Q4

REPORT INFORMATION
  Report Type: Spontaneous
  Country: US (occurrence: US)
  Receive Date: 20190504
  Receipt Date: 20201021
  Transmission Date: 20210113
  Serious: Yes (Hospitalization, Other)
  Sender: FDA-Public Use
  Company Number: US-TEVA-2019-US-1043897

PATIENT
  Age: 75 Year
  Sex: Female

DRUGS (1)
  1. WARFARIN SODIUM. [Suspect]
     Active Substance: WARFARIN SODIUM
     Indication: ATRIAL FIBRILLATION
     Route: 065
     Dates: start: 2009

REACTIONS (3)
  - Vitamin D decreased [Unknown]
  - Clostridium difficile infection [Recovered/Resolved]
  - Drug level decreased [Recovered/Resolved]

NARRATIVE: CASE EVENT DATE: 201901
